FAERS Safety Report 9442940 (Version 1)
Quarter: 2013Q3

REPORT INFORMATION
  Report Type: Spontaneous
  Country: US (occurrence: None)
  Receive Date: 20130805
  Receipt Date: 20130805
  Transmission Date: 20140515
  Serious: Yes (Other)
  Sender: FDA-Public Use
  Company Number: None

PATIENT
  Age: 28 Year
  Sex: Female
  Weight: 63.5 kg

DRUGS (1)
  1. GENERESS FE [Suspect]
     Indication: HAEMORRHAGE
     Dosage: 24/4 QD PO
     Route: 048
     Dates: start: 20120202, end: 20130301

REACTIONS (4)
  - Weight decreased [None]
  - Alopecia [None]
  - Alopecia [None]
  - Hepatic enzyme increased [None]
